FAERS Safety Report 19144842 (Version 3)
Quarter: 2021Q2

REPORT INFORMATION
  Report Type: Report from Study
  Country: JP (occurrence: JP)
  Receive Date: 20210416
  Receipt Date: 20210514
  Transmission Date: 20210717
  Serious: Yes (Hospitalization)
  Sender: FDA-Public Use
  Company Number: JP-ASTELLAS-2021JP004168

PATIENT
  Age: 63 Year
  Sex: Male

DRUGS (14)
  1. ANTEBATE [Concomitant]
     Active Substance: BETAMETHASONE DIPROPIONATE
     Indication: RASH
     Dosage: AS APPROPRIATE, ADEQUATE DOSE
     Route: 062
     Dates: start: 20201203
  2. ZOLPIDEM TARTRATE. [Concomitant]
     Active Substance: ZOLPIDEM TARTRATE
     Indication: INSOMNIA
     Dosage: AS APPROPRIATE
     Route: 048
     Dates: start: 20200917
  3. NEXIUM [Concomitant]
     Active Substance: ESOMEPRAZOLE MAGNESIUM
     Indication: GASTRITIS PROPHYLAXIS
     Dosage: 1 DF, ONCE DAILY, AFTER BREAKFAST
     Route: 048
  4. BIOFERMIN [LACTOMIN] [Concomitant]
     Active Substance: DIETARY SUPPLEMENT\PROBIOTICS
     Indication: CONSTIPATION
     Dosage: 1 DF, THRICE DAILY, AFTER EVERY MEAL
     Route: 048
     Dates: start: 20210107
  5. THYRADIN?S [Concomitant]
     Active Substance: LEVOTHYROXINE
     Indication: HYPOTHYROIDISM
     Dosage: 3 DF, ONCE DAILY, AFTER BREAKFAST
     Route: 048
     Dates: start: 20200415
  6. SHAKUYAKUKANZOTO [Concomitant]
     Active Substance: HERBALS
     Indication: PROPHYLAXIS
     Dosage: 1 DF, THRICE DAILY, AFTER EVERY MEAL
     Route: 048
     Dates: start: 20201210
  7. DAIKENCHUTO [Concomitant]
     Active Substance: HERBALS
     Indication: CONSTIPATION
     Dosage: 2 DF, THRICE DAILY, AFTER EVERY MEAL
     Route: 048
     Dates: start: 20210121
  8. HIRUDOID [Concomitant]
     Active Substance: GLYCOSAMINOGLYCANS
     Indication: RASH
     Dosage: AS APPROPRIATE, ADEQUATE DOSE
     Route: 050
     Dates: start: 20210218
  9. ASG?22CE [Suspect]
     Active Substance: ENFORTUMAB VEDOTIN
     Indication: OESOPHAGEAL CARCINOMA
     Dosage: 1.0 MG/KG, UNKNOWN FREQ.
     Route: 065
     Dates: start: 20201126, end: 20210225
  10. AMLODIPINE BESILATE [Concomitant]
     Active Substance: AMLODIPINE BESYLATE
     Indication: HYPERTENSION
     Dosage: 1 DF, ONCE DAILY, AFTER BREAKFAST
     Route: 048
     Dates: start: 201911
  11. CALCIUM LACTATE [Concomitant]
     Active Substance: CALCIUM LACTATE
     Indication: PRODUCT USED FOR UNKNOWN INDICATION
     Dosage: 1 G, THRICE DAILY, AFTER EVERY MEAL
     Route: 048
     Dates: start: 20200407
  12. SODIUM PICOSULFATE [Concomitant]
     Active Substance: SODIUM PICOSULFATE
     Indication: CONSTIPATION
     Dosage: AS APPROPRIATE, ADEQUATE DOSE
     Route: 048
     Dates: start: 20201203
  13. ALFACALCIDOL [Concomitant]
     Active Substance: ALFACALCIDOL
     Indication: PRODUCT USED FOR UNKNOWN INDICATION
     Dosage: 4 DF, ONCE DAILY, AFTER BREAKFAST
     Route: 048
     Dates: start: 20200407
  14. MAGMITT [Concomitant]
     Active Substance: MAGNESIUM OXIDE
     Indication: CONSTIPATION
     Dosage: AS APPROPRIATE, ADEQUATE DOSE
     Route: 048
     Dates: start: 20201203

REACTIONS (1)
  - Dermatomyositis [Recovering/Resolving]

NARRATIVE: CASE EVENT DATE: 20210303
